FAERS Safety Report 8978955 (Version 3)
Quarter: 2013Q1

REPORT INFORMATION
  Report Type: Report from Study
  Country: CA (occurrence: CA)
  Receive Date: 20121220
  Receipt Date: 20130124
  Transmission Date: 20140127
  Serious: Yes (Other)
  Sender: FDA-Public Use
  Company Number: CA-ABBOTT-12P-028-1024431-00

PATIENT
  Sex: Female
  Weight: 54.48 kg

DRUGS (2)
  1. HUMIRA [Suspect]
     Indication: ANKYLOSING SPONDYLITIS
     Dosage: WEEKLY
     Route: 058
     Dates: start: 20111013, end: 20121005
  2. HUMIRA [Suspect]
     Dosage: LATEST DOSE: -DEC-2012
     Dates: start: 20121104

REACTIONS (1)
  - Varicose vein [Recovered/Resolved]
